FAERS Safety Report 10567104 (Version 3)
Quarter: 2014Q4

REPORT INFORMATION
  Report Type: Spontaneous
  Country: FR (occurrence: FR)
  Receive Date: 20141105
  Receipt Date: 20141112
  Transmission Date: 20150529
  Serious: Yes (Other)
  Sender: FDA-Public Use
  Company Number: ALCN2014FR006035

PATIENT
  Age: 28 Year
  Sex: Female
  Weight: 63 kg

DRUGS (7)
  1. TRAVATAN [Suspect]
     Active Substance: TRAVOPROST
     Indication: OPEN ANGLE GLAUCOMA
     Dosage: 1 GTT, ONCE/SINGLE (IN THE EVENING)
     Route: 047
     Dates: start: 20141021, end: 20141021
  2. VENTOLINE [Concomitant]
     Active Substance: ALBUTEROL
     Indication: ASTHMA
     Dosage: 1 DF, PRN
     Route: 055
  3. SERETIDE [Concomitant]
     Active Substance: FLUTICASONE FUROATE\SALMETEROL XINAFOATE
     Indication: ASTHMA
     Dosage: UNK
  4. KESTIN [Concomitant]
     Active Substance: EBASTINE
     Indication: HYPERSENSITIVITY
  5. SINGULAIR [Concomitant]
     Active Substance: MONTELUKAST SODIUM
     Indication: ASTHMA
     Dosage: 1 DF, QD
     Route: 048
  6. KESTIN [Concomitant]
     Active Substance: EBASTINE
     Indication: ASTHMA
     Dosage: UNK
  7. SINGULAIR [Concomitant]
     Active Substance: MONTELUKAST SODIUM
     Indication: HYPERSENSITIVITY

REACTIONS (12)
  - Dyspnoea [Recovered/Resolved]
  - Palpitations [Recovered/Resolved]
  - Tremor [Recovered/Resolved]
  - Swelling face [Recovered/Resolved]
  - Lip swelling [Recovered/Resolved]
  - Face oedema [Unknown]
  - Hypersensitivity [Recovering/Resolving]
  - Dyspepsia [Recovered/Resolved]
  - Throat irritation [Recovered/Resolved]
  - Ocular hyperaemia [Recovered/Resolved]
  - Nasal discomfort [Recovering/Resolving]
  - Eye swelling [Recovered/Resolved]

NARRATIVE: CASE EVENT DATE: 20141021
